FAERS Safety Report 5448227-4 (Version None)
Quarter: 2007Q3

REPORT INFORMATION
  Report Type: 
  Country: None (occurrence: None)
  Receive Date: 20070906
  Receipt Date: 20070829
  Transmission Date: 20080115
  Serious: Yes (Hospitalization)
  Sender: FDA-Public Use
  Company Number: 2007BI018512

PATIENT
  Age: 44 Year
  Sex: Female
  Weight: 67 kg

DRUGS (10)
  1. AVONEX [Suspect]
     Indication: MULTIPLE SCLEROSIS
     Dosage: 30 UG; QW; IM
     Route: 030
     Dates: start: 20060501
  2. DOPADURA                      (DOPAMINE HYDROCHLORIDE) [Concomitant]
  3. RANITIC [Concomitant]
  4. IODID             (IODIDE) [Concomitant]
  5. GABAPENTIN [Concomitant]
  6. IBUTARD                  (IBUPROFEN) [Concomitant]
  7. NOVAMINSULFON [Concomitant]
  8. TAVOR [Concomitant]
  9. MOVICOL [Concomitant]
  10. TRAMADOL HCL [Concomitant]

REACTIONS (6)
  - ARTHROPATHY [None]
  - BACK PAIN [None]
  - INFLAMMATION [None]
  - MENTAL DISORDER [None]
  - MULTIPLE SCLEROSIS RELAPSE [None]
  - PAIN [None]
